FAERS Safety Report 6570650-5 (Version None)
Quarter: 2010Q1

REPORT INFORMATION
  Report Type: 
  Country: None (occurrence: None)
  Receive Date: 20100204
  Receipt Date: 20100129
  Transmission Date: 20100710
  Serious: Yes (Hospitalization, Other)
  Sender: FDA-Public Use
  Company Number: US-PFIZER INC-2009299578

PATIENT
  Sex: Female
  Weight: 68.934 kg

DRUGS (12)
  1. TOVIAZ [Suspect]
     Indication: HYPERTONIC BLADDER
     Dosage: 8 MG, 1X/DAY
     Route: 048
     Dates: start: 20091001, end: 20091014
  2. TOVIAZ [Suspect]
     Dosage: 8 MG, 1X/DAY
     Route: 048
  3. ARMODAFINIL [Suspect]
     Dosage: 150 MG, 1X/DAY
     Dates: start: 20090101
  4. FLUOROMETHOLONE ACETATE [Concomitant]
     Dosage: UNK
  5. EFFEXOR [Concomitant]
     Dosage: UNK
  6. LORAZEPAM [Concomitant]
     Dosage: UNK
  7. LEVOTHYROXINE [Concomitant]
     Dosage: UNK
  8. ENALAPRIL [Concomitant]
     Dosage: UNK
  9. ASPIRIN [Concomitant]
     Dosage: UNK
  10. OMEPRAZOLE [Concomitant]
     Dosage: UNK
  11. COLACE [Concomitant]
     Dosage: UNK
  12. ESTRACE [Concomitant]
     Dosage: UNK

REACTIONS (4)
  - DIARRHOEA [None]
  - STEVENS-JOHNSON SYNDROME [None]
  - THERMAL BURN [None]
  - WOUND [None]
